FAERS Safety Report 5109825-0 (Version None)
Quarter: 2006Q3

REPORT INFORMATION
  Report Type: 
  Country: None (occurrence: None)
  Receive Date: 20060918
  Receipt Date: 20060918
  Transmission Date: 20061208
  Serious: No
  Sender: FDA-Public Use
  Company Number: None

PATIENT
  Age: 36 Year
  Sex: Female
  Weight: 58.9676 kg

DRUGS (1)
  1. CIPRO [Suspect]
     Indication: URINARY TRACT INFECTION
     Dosage: 500 MG TWICE PO
     Route: 048
     Dates: start: 20060510, end: 20060520

REACTIONS (20)
  - CHEST PAIN [None]
  - DEPRESSION [None]
  - DIZZINESS [None]
  - DRY EYE [None]
  - EAR DISCOMFORT [None]
  - EAR PAIN [None]
  - EYE PAIN [None]
  - FATIGUE [None]
  - FORMICATION [None]
  - HEADACHE [None]
  - JOINT STIFFNESS [None]
  - MEMORY IMPAIRMENT [None]
  - MUSCULOSKELETAL STIFFNESS [None]
  - NECK PAIN [None]
  - PAIN IN EXTREMITY [None]
  - PHOTOPSIA [None]
  - PRURITUS [None]
  - UNEVALUABLE EVENT [None]
  - VISION BLURRED [None]
  - VITREOUS FLOATERS [None]
